FAERS Safety Report 20833456 (Version 1)
Quarter: 2022Q2

REPORT INFORMATION
  Report Type: Spontaneous
  Country: US (occurrence: None)
  Receive Date: 20220515
  Receipt Date: 20220515
  Transmission Date: 20220721
  Serious: Yes (Disabling)
  Sender: FDA-Public Use
  Company Number: None

PATIENT
  Age: 43 Year
  Sex: Female
  Weight: 65.25 kg

DRUGS (1)
  1. MONTELUKAST [Suspect]
     Active Substance: MONTELUKAST SODIUM
     Indication: Allergic sinusitis
     Dosage: OTHER QUANTITY : 1 TABLET(S);?FREQUENCY : AT BEDTIME;?
     Route: 048
     Dates: start: 20220513, end: 20220513

REACTIONS (7)
  - Hypersomnia [None]
  - Restlessness [None]
  - Nightmare [None]
  - Headache [None]
  - Myalgia [None]
  - Ear pain [None]
  - Muscle twitching [None]

NARRATIVE: CASE EVENT DATE: 20220514
